FAERS Safety Report 5965082-4 (Version None)
Quarter: 2008Q4

REPORT INFORMATION
  Report Type: 
  Country: None (occurrence: None)
  Receive Date: 20081125
  Receipt Date: 20081110
  Transmission Date: 20090506
  Serious: Yes (Life-Threatening, Hospitalization)
  Sender: FDA-Public Use
  Company Number: IT-GENENTECH-271872

PATIENT

DRUGS (1)
  1. RITUXIMAB [Suspect]
     Indication: EXTRANODAL MARGINAL ZONE B-CELL LYMPHOMA (MALT TYPE)
     Dosage: 640 MG, UNK
     Dates: start: 20080122

REACTIONS (2)
  - PYREXIA [None]
  - RESPIRATORY FAILURE [None]
